FAERS Safety Report 9910408 (Version 1)
Quarter: 2014Q1

REPORT INFORMATION
  Report Type: Spontaneous
  Country: US (occurrence: US)
  Receive Date: 20140219
  Receipt Date: 20140219
  Transmission Date: 20141002
  Serious: No
  Sender: FDA-Public Use
  Company Number: US-PFIZER INC-2014044820

PATIENT
  Age: 61 Year
  Sex: Male
  Weight: 82.99 kg

DRUGS (3)
  1. VIAGRA [Suspect]
     Indication: ERECTILE DYSFUNCTION
     Dosage: 50 MG, UNK
  2. VIAGRA [Suspect]
     Dosage: 100 MG, UNK
  3. SILDENAFIL CITRATE [Suspect]
     Indication: ERECTILE DYSFUNCTION
     Dosage: UNK

REACTIONS (3)
  - Expired drug administered [Unknown]
  - Drug ineffective [Unknown]
  - Wrong drug administered [Unknown]
